FAERS Safety Report 24267107 (Version 1)
Quarter: 2024Q3

REPORT INFORMATION
  Report Type: Report from Study
  Country: US (occurrence: None)
  Receive Date: 20240830
  Receipt Date: 20240830
  Transmission Date: 20241017
  Serious: Yes (Hospitalization, Other)
  Sender: ASTRAZENECA
  Company Number: 2024A193500

PATIENT
  Age: 29065 Day
  Sex: Female

DRUGS (1)
  1. CALQUENCE [Suspect]
     Active Substance: ACALABRUTINIB
     Indication: Lymphocytic leukaemia
     Route: 048

REACTIONS (4)
  - Pericardial effusion [Unknown]
  - Dyspnoea [Unknown]
  - Fall [Unknown]
  - Back disorder [Unknown]

NARRATIVE: CASE EVENT DATE: 20240101
